FAERS Safety Report 8485097-4 (Version None)
Quarter: 2012Q3

REPORT INFORMATION
  Report Type: 
  Country: None (occurrence: None)
  Receive Date: 20120703
  Receipt Date: 20120622
  Transmission Date: 20120928
  Serious: Yes (Hospitalization)
  Sender: FDA-Public Use
  Company Number: BR-SHIRE-SPV1-2012-00578

PATIENT
  Sex: Male
  Weight: 44 kg

DRUGS (1)
  1. ELAPRASE [Suspect]
     Indication: MUCOPOLYSACCHARIDOSIS II
     Dosage: 4 DF, 1X/WEEK
     Route: 041
     Dates: start: 20111116

REACTIONS (2)
  - FUNCTIONAL GASTROINTESTINAL DISORDER [None]
  - ANURIA [None]
